FAERS Safety Report 12945902 (Version 2)
Quarter: 2016Q4

REPORT INFORMATION
  Report Type: Spontaneous
  Country: DE (occurrence: DE)
  Receive Date: 20161116
  Receipt Date: 20161128
  Transmission Date: 20170207
  Serious: Yes (Other)
  Sender: FDA-Public Use
  Company Number: DE-SUN PHARMACEUTICAL INDUSTRIES LTD-2016RR-127623

PATIENT
  Age: 48 Year
  Sex: Female
  Weight: 59 kg

DRUGS (1)
  1. CIPRO [Suspect]
     Active Substance: CIPROFLOXACIN HYDROCHLORIDE
     Indication: CYSTITIS
     Dosage: 500 MG, BID
     Route: 048
     Dates: start: 20161001

REACTIONS (27)
  - Bladder pain [Recovered/Resolved]
  - Muscular weakness [Unknown]
  - Malaise [Unknown]
  - Weight decreased [Unknown]
  - Palpitations [Unknown]
  - Mental fatigue [Unknown]
  - Tremor [Unknown]
  - Decreased appetite [Recovered/Resolved]
  - Nightmare [Unknown]
  - Tinnitus [Unknown]
  - Panic attack [Recovered/Resolved]
  - Palpitations [Recovered/Resolved]
  - Chest discomfort [Unknown]
  - Illusion [Unknown]
  - Sensory disturbance [Recovered/Resolved]
  - Hyperhidrosis [Unknown]
  - Irritability [Unknown]
  - Depressed mood [Unknown]
  - Disturbance in attention [Unknown]
  - Coordination abnormal [Recovered/Resolved]
  - Blood pressure increased [Unknown]
  - Fatigue [Recovered/Resolved]
  - Eyelid oedema [Recovered/Resolved]
  - Respiratory distress [Recovered/Resolved]
  - Blood glucose increased [Unknown]
  - Asthenia [Unknown]
  - Personality disorder [Unknown]

NARRATIVE: CASE EVENT DATE: 201610
